FAERS Safety Report 19456176 (Version 1)
Quarter: 2021Q2

REPORT INFORMATION
  Report Type: Other
  Country: FR (occurrence: FR)
  Receive Date: 20210624
  Receipt Date: 20210624
  Transmission Date: 20210717
  Serious: Yes (Other)
  Sender: FDA-Public Use
  Company Number: FR-CADILA HEALTHCARE LIMITED-FR-ZYDUS-067060

PATIENT

DRUGS (7)
  1. PLITICAN [Suspect]
     Active Substance: ALIZAPRIDE HYDROCHLORIDE
     Indication: PREMEDICATION
     Dosage: + 30 MG IF NAUSEA
     Route: 042
     Dates: start: 20210510, end: 20210510
  2. ETOPOSIDE. [Suspect]
     Active Substance: ETOPOSIDE
     Indication: PANCREATOBLASTOMA
     Route: 042
     Dates: start: 20210510, end: 20210510
  3. IFOSFAMIDE. [Suspect]
     Active Substance: IFOSFAMIDE
     Indication: PANCREATOBLASTOMA
     Route: 042
     Dates: start: 20210512, end: 20210512
  4. ZOPHREN [ONDANSETRON] [Suspect]
     Active Substance: ONDANSETRON
     Indication: PREMEDICATION
     Dosage: 3 DOSAGE FORM, QD
     Route: 048
     Dates: start: 20210510, end: 20210510
  5. OLANZAPINE. [Suspect]
     Active Substance: OLANZAPINE
     Indication: PREMEDICATION
     Dosage: 2.5 MILLIGRAM, QD
     Route: 048
     Dates: start: 20210510, end: 20210510
  6. EMEND [Suspect]
     Active Substance: APREPITANT
     Indication: PREMEDICATION
     Dosage: 1 DOSAGE FORM, QD
     Route: 048
     Dates: start: 20210510, end: 20210510
  7. DEXAMETHASONE. [Suspect]
     Active Substance: DEXAMETHASONE
     Indication: PREMEDICATION
     Dosage: + 30 MG IF NAUSEA
     Route: 042
     Dates: start: 20210510, end: 20210510

REACTIONS (2)
  - Aplasia [Not Recovered/Not Resolved]
  - Pyrexia [Recovered/Resolved]

NARRATIVE: CASE EVENT DATE: 20210512
